FAERS Safety Report 6464334-1 (Version None)
Quarter: 2009Q4

REPORT INFORMATION
  Report Type: 
  Country: None (occurrence: None)
  Receive Date: 20091201
  Receipt Date: 20090505
  Transmission Date: 20100525
  Serious: No
  Sender: FDA-Public Use
  Company Number: US-AMGEN-COG333232

PATIENT
  Sex: Female

DRUGS (5)
  1. ENBREL [Suspect]
     Indication: PSORIATIC ARTHROPATHY
     Route: 058
     Dates: start: 20081022
  2. ENBREL [Suspect]
     Indication: PSORIASIS
  3. HYDREA [Concomitant]
  4. ASPIRIN [Concomitant]
  5. ALEVE [Concomitant]

REACTIONS (7)
  - ARTHRALGIA [None]
  - INJECTION SITE DISCHARGE [None]
  - INJECTION SITE HAEMATOMA [None]
  - INJECTION SITE PAIN [None]
  - MUSCULOSKELETAL STIFFNESS [None]
  - PSORIASIS [None]
  - SINUS CONGESTION [None]
